FAERS Safety Report 10015369 (Version 1)
Quarter: 2014Q1

REPORT INFORMATION
  Report Type: Spontaneous
  Country: US (occurrence: US)
  Receive Date: 20140317
  Receipt Date: 20140317
  Transmission Date: 20141002
  Serious: No
  Sender: FDA-Public Use
  Company Number: US-PFIZER INC-2014076555

PATIENT
  Age: 59 Year
  Sex: Male
  Weight: 83.9 kg

DRUGS (2)
  1. DILANTIN [Suspect]
     Indication: CONVULSION
     Dosage: 30 MG IN MORNING AND 60 MG AT NIGHT, 2X/DAY
  2. DILANTIN [Suspect]
     Dosage: 200 MG, 2X/DAY

REACTIONS (1)
  - Drug ineffective [Unknown]
